FAERS Safety Report 8793623 (Version 4)
Quarter: 2013Q1

REPORT INFORMATION
  Report Type: Spontaneous
  Country: AU (occurrence: AU)
  Receive Date: 20120917
  Receipt Date: 20130325
  Transmission Date: 20140127
  Serious: Yes (Other)
  Sender: FDA-Public Use
  Company Number: AU-GLAXOSMITHKLINE-B0830487A

PATIENT
  Age: 76 Year
  Sex: Male
  Weight: 100 kg

DRUGS (2)
  1. FLIXOTIDE [Suspect]
     Indication: ASTHMA
     Route: 055
  2. BRICANYL [Concomitant]

REACTIONS (3)
  - Asthma [Not Recovered/Not Resolved]
  - Device ineffective [Unknown]
  - Product quality issue [Unknown]
